FAERS Safety Report 6160963-3 (Version None)
Quarter: 2009Q2

REPORT INFORMATION
  Report Type: 
  Country: None (occurrence: None)
  Receive Date: 20090420
  Receipt Date: 20090406
  Transmission Date: 20091009
  Serious: Yes (Hospitalization, Other)
  Sender: FDA-Public Use
  Company Number: US-AMGEN-QUU343218

PATIENT
  Sex: Male

DRUGS (19)
  1. ENBREL [Suspect]
     Indication: RHEUMATOID ARTHRITIS
     Route: 058
     Dates: start: 19990811, end: 20081201
  2. PROSCAR [Concomitant]
     Route: 048
  3. BECONASE AQUA [Concomitant]
  4. FOLIC ACID [Concomitant]
     Route: 048
  5. ANTIOXIDANT [Concomitant]
  6. METHOTREXATE [Concomitant]
     Route: 048
  7. ASPIRIN [Concomitant]
     Route: 048
  8. GLUCOSAMINE [Concomitant]
  9. FLAX SEED OIL [Concomitant]
  10. CALCIUM [Concomitant]
  11. ELAVIL [Concomitant]
  12. MULTI-VITAMINS [Concomitant]
  13. PHENTERMINE [Concomitant]
  14. ACYCLOVIR [Concomitant]
     Route: 048
  15. OMEPRAZOLE [Concomitant]
     Route: 048
  16. OXYCODONE HCL [Concomitant]
  17. AMBIEN [Concomitant]
     Route: 048
  18. MILK OF MAGNESIA [Concomitant]
  19. STOOL SOFTENER [Concomitant]

REACTIONS (19)
  - ANOREXIA [None]
  - C-REACTIVE PROTEIN INCREASED [None]
  - DEHYDRATION [None]
  - DYSGEUSIA [None]
  - HODGKIN'S DISEASE STAGE IV [None]
  - INFREQUENT BOWEL MOVEMENTS [None]
  - INSOMNIA [None]
  - IRON DEFICIENCY ANAEMIA [None]
  - LIPOMA [None]
  - MALIGNANT MELANOMA [None]
  - NAUSEA [None]
  - NEUTROPHIL COUNT DECREASED [None]
  - PLEURAL EFFUSION [None]
  - PRODUCTIVE COUGH [None]
  - PRURITUS [None]
  - RED BLOOD CELL SEDIMENTATION RATE INCREASED [None]
  - SKIN CANCER [None]
  - VENTRICULAR EXTRASYSTOLES [None]
  - VOMITING [None]
